FAERS Safety Report 21371749 (Version 1)
Quarter: 2022Q3

REPORT INFORMATION
  Report Type: Spontaneous
  Country: JP (occurrence: JP)
  Receive Date: 20220923
  Receipt Date: 20220923
  Transmission Date: 20221026
  Serious: Yes (Other)
  Sender: FDA-Public Use
  Company Number: JP-PAIPHARMA-2022-JP-000411

PATIENT
  Age: 61 Year
  Sex: Male

DRUGS (7)
  1. PREDNISOLONE SODIUM PHOSPHATE [Suspect]
     Active Substance: PREDNISOLONE SODIUM PHOSPHATE
     Indication: Deafness
     Dosage: 30 MG
  2. BETAMETHASONE BUTYRATE PROPIONATE [Suspect]
     Active Substance: BETAMETHASONE BUTYRATE PROPIONATE
     Indication: Deafness
     Dosage: 4 MG
  3. METHYLCOBALAMIN [Concomitant]
     Active Substance: METHYLCOBALAMIN
     Dosage: 500 MICROGRAMS
  4. TEPRENONE [Concomitant]
     Active Substance: TEPRENONE
     Dosage: 50 MG
  5. Adenosine triphosphate disodium hydrate [Concomitant]
  6. ACYCLOVIR [Concomitant]
     Active Substance: ACYCLOVIR
  7. SULFAMETHOXAZOLE AND TRIMETHOPRIM [Concomitant]
     Active Substance: SULFAMETHOXAZOLE\TRIMETHOPRIM

REACTIONS (1)
  - Acute hepatic failure [Recovered/Resolved]
